FAERS Safety Report 13124960 (Version 1)
Quarter: 2017Q1

REPORT INFORMATION
  Report Type: Spontaneous
  Country: CH (occurrence: CH)
  Receive Date: 20170118
  Receipt Date: 20170118
  Transmission Date: 20170428
  Serious: Yes (Other)
  Sender: FDA-Public Use
  Company Number: CH-ELI_LILLY_AND_COMPANY-CH201611010100

PATIENT
  Sex: Female

DRUGS (1)
  1. FLUCTINE [Suspect]
     Active Substance: FLUOXETINE HYDROCHLORIDE
     Indication: PRODUCT USED FOR UNKNOWN INDICATION
     Dosage: UNK
     Route: 065
     Dates: start: 2008

REACTIONS (4)
  - Bronchial neoplasm [Unknown]
  - Inappropriate antidiuretic hormone secretion [Unknown]
  - Cough [Unknown]
  - Weight decreased [Unknown]
